FAERS Safety Report 12615502 (Version 4)
Quarter: 2017Q2

REPORT INFORMATION
  Report Type: Report from Study
  Country: CA (occurrence: CA)
  Receive Date: 20160802
  Receipt Date: 20170519
  Transmission Date: 20170830
  Serious: Yes (Disabling, Other)
  Sender: FDA-Public Use
  Company Number: PHHY2015CA032450

PATIENT
  Age: 54 Year
  Sex: Male

DRUGS (2)
  1. SANDOSTATIN LAR DEPOT [Suspect]
     Active Substance: OCTREOTIDE ACETATE
     Indication: PANCREATIC NEUROENDOCRINE TUMOUR
     Dosage: 30 MG, QMO (EVERY 4 WEEKS)
     Route: 030
     Dates: start: 20140731
  2. ATACAND [Concomitant]
     Active Substance: CANDESARTAN CILEXETIL
     Indication: BLOOD PRESSURE ABNORMAL
     Route: 065

REACTIONS (10)
  - Defaecation urgency [Unknown]
  - Paraesthesia [Unknown]
  - Rectal abscess [Recovering/Resolving]
  - Blood glucose increased [Unknown]
  - Blood pressure systolic increased [Unknown]
  - Pilonidal cyst [Unknown]
  - Blood pressure increased [Unknown]
  - Ocular discomfort [Unknown]
  - Diarrhoea [Unknown]
  - Muscle spasms [Unknown]

NARRATIVE: CASE EVENT DATE: 20150311
